FAERS Safety Report 4748735-5 (Version None)
Quarter: 2005Q3

REPORT INFORMATION
  Report Type: 
  Country: None (occurrence: None)
  Receive Date: 20050819
  Receipt Date: 20050808
  Transmission Date: 20060218
  Serious: Yes (Disabling)
  Sender: FDA-Public Use
  Company Number: 2005SE04545

PATIENT
  Age: 60 Year
  Sex: Male

DRUGS (4)
  1. AMIAS 8MG TABLETS [Suspect]
     Indication: HYPERTENSION
     Route: 048
     Dates: start: 20030908
  2. ALLOPURINOL [Interacting]
     Indication: GOUT
     Route: 048
     Dates: start: 20050411, end: 20050501
  3. CARDURA XL [Concomitant]
     Indication: HYPERTENSION
     Route: 048
     Dates: start: 20020121
  4. IBUPROFEN [Concomitant]
     Indication: BACK PAIN
     Route: 048
     Dates: start: 20001012

REACTIONS (4)
  - ASTHENIA [None]
  - DIZZINESS [None]
  - DRUG INTERACTION [None]
  - DRUG TOXICITY [None]
